FAERS Safety Report 5196542-4 (Version None)
Quarter: 2006Q4

REPORT INFORMATION
  Report Type: 
  Country: None (occurrence: None)
  Receive Date: 20061227
  Receipt Date: 20020128
  Transmission Date: 20070319
  Serious: No
  Sender: FDA-Public Use
  Company Number: S01-FRA-01964-01

PATIENT
  Age: 27 Year
  Sex: Female

DRUGS (3)
  1. CITALOPRAM HYDROBROMIDE [Suspect]
     Indication: DEPRESSION
     Dosage: 20 MG QD PO
     Route: 048
     Dates: start: 20010523
  2. VARNOLINE [Concomitant]
  3. DESOGESTREL AND ETHINYL ESTRADIOL [Concomitant]

REACTIONS (2)
  - ECCHYMOSIS [None]
  - IRON DEFICIENCY ANAEMIA [None]
